FAERS Safety Report 8580558-1 (Version None)
Quarter: 2012Q3

REPORT INFORMATION
  Report Type: 
  Country: None (occurrence: None)
  Receive Date: 20120808
  Receipt Date: 20120724
  Transmission Date: 20120928
  Serious: Yes (Hospitalization)
  Sender: FDA-Public Use
  Company Number: CHPA2012US016637

PATIENT
  Age: 67 Year
  Sex: Male

DRUGS (2)
  1. DRUG THERAPY NOS [Concomitant]
     Indication: SMOKING CESSATION THERAPY
     Dosage: 21 MG, QD
     Route: 062
     Dates: start: 20120601, end: 20120701
  2. NICOTINE [Suspect]
     Indication: SMOKING CESSATION THERAPY
     Dosage: 21 MG, QD
     Route: 062

REACTIONS (6)
  - CHRONIC OBSTRUCTIVE PULMONARY DISEASE [None]
  - FEELING ABNORMAL [None]
  - FLUID RETENTION [None]
  - DIVERTICULITIS [None]
  - BLOOD PRESSURE DECREASED [None]
  - CONCOMITANT DISEASE AGGRAVATED [None]
